FAERS Safety Report 9414298 (Version 2)
Quarter: 2013Q4

REPORT INFORMATION
  Report Type: Spontaneous
  Country: JP (occurrence: JP)
  Receive Date: 20130723
  Receipt Date: 20131230
  Transmission Date: 20140711
  Serious: Yes (Other)
  Sender: FDA-Public Use
  Company Number: JP-VERTEX PHARMACEUTICALS INC-2013-008178

PATIENT
  Age: 72 Year
  Sex: Female

DRUGS (9)
  1. TELAVIC [Suspect]
     Indication: CHRONIC HEPATITIS C
     Dosage: 1500 MG, QD
     Route: 048
     Dates: start: 20130401, end: 20130508
  2. PEGINTRON [Concomitant]
     Dosage: 100 ?G, QD
     Route: 058
     Dates: start: 20130401, end: 20130520
  3. REBETOL [Concomitant]
     Dosage: 400 MG, QD
     Route: 048
     Dates: start: 20130401, end: 20130605
  4. BLOPRESS [Concomitant]
     Dosage: 4 MG, QD
     Route: 048
  5. ATELEC [Concomitant]
     Dosage: 10 MG, QD
     Route: 048
  6. TAKEPRON [Concomitant]
     Dosage: 30 MG, QD
     Route: 048
  7. LENDORMIN [Concomitant]
     Dosage: 0.5 MG, QD
     Route: 048
  8. PREDONINE [Concomitant]
     Dosage: 15 MG, QD
     Route: 048
     Dates: start: 20130401, end: 20130518
  9. TALION [Concomitant]
     Dosage: 20 MG, QD
     Route: 048
     Dates: start: 20130401, end: 20130518

REACTIONS (1)
  - Drug eruption [Recovered/Resolved]
